FAERS Safety Report 20124768 (Version 1)
Quarter: 2021Q4

REPORT INFORMATION
  Report Type: Report from Study
  Country: US (occurrence: US)
  Receive Date: 20211129
  Receipt Date: 20211129
  Transmission Date: 20220303
  Serious: Yes (Other)
  Sender: FDA-Public Use
  Company Number: US-REGENERON PHARMACEUTICALS, INC.-2021-102792

PATIENT

DRUGS (1)
  1. PRALUENT [Suspect]
     Active Substance: ALIROCUMAB
     Indication: Product used for unknown indication
     Dosage: UNK
     Route: 065

REACTIONS (6)
  - Lupus-like syndrome [Unknown]
  - Arthralgia [Unknown]
  - Joint stiffness [Unknown]
  - Muscular weakness [Unknown]
  - Serum sickness [Unknown]
  - Hypersensitivity [Unknown]
